FAERS Safety Report 8216883-3 (Version None)
Quarter: 2012Q1

REPORT INFORMATION
  Report Type: 
  Country: None (occurrence: None)
  Receive Date: 20120316
  Receipt Date: 20120307
  Transmission Date: 20120608
  Serious: Yes (Hospitalization)
  Sender: FDA-Public Use
  Company Number: US-ASTRAZENECA-2012SE16327

PATIENT
  Age: 40 Year
  Sex: Male
  Weight: 88.5 kg

DRUGS (7)
  1. SEROQUEL [Suspect]
     Indication: POST-TRAUMATIC STRESS DISORDER
     Route: 048
  2. PROAIR HFA [Concomitant]
     Indication: ASTHMA
     Dosage: ONE PUFF PRN
     Route: 048
  3. NEURONTIN [Concomitant]
     Indication: POST-TRAUMATIC STRESS DISORDER
     Dosage: MIDEST QD
     Route: 048
  4. NEXIUM [Suspect]
     Indication: GASTROOESOPHAGEAL REFLUX DISEASE
     Route: 048
  5. ZANTAX [Concomitant]
     Indication: POST-TRAUMATIC STRESS DISORDER
     Route: 048
  6. SYMBICORT [Suspect]
     Indication: ASTHMA
     Dosage: TWO PUFFS TWO TIMES A DAY
     Route: 055
  7. SEROQUEL [Suspect]
     Indication: SLEEP DISORDER
     Route: 048

REACTIONS (5)
  - POST PROCEDURAL SWELLING [None]
  - ERYTHEMA [None]
  - STAPHYLOCOCCAL INFECTION [None]
  - BURNING SENSATION [None]
  - OFF LABEL USE [None]
